FAERS Safety Report 11256796 (Version 1)
Quarter: 2015Q3

REPORT INFORMATION
  Report Type: Spontaneous
  Country: US (occurrence: US)
  Receive Date: 20150709
  Receipt Date: 20150709
  Transmission Date: 20151125
  Serious: No
  Sender: FDA-Public Use
  Company Number: US-PURDUE-USA-2014-0115459

PATIENT
  Sex: Female

DRUGS (2)
  1. BUTRANS [Suspect]
     Active Substance: BUPRENORPHINE
     Indication: PAIN
     Dosage: 10 MCG/HR, WEEKLY
     Route: 062
     Dates: start: 201311, end: 20140702
  2. BUTRANS [Suspect]
     Active Substance: BUPRENORPHINE
     Dosage: 5 MCG/HR, WEEKLY
     Route: 062
     Dates: start: 201310, end: 201311

REACTIONS (10)
  - Application site burn [Unknown]
  - Dental caries [Unknown]
  - Dry mouth [Recovered/Resolved]
  - Application site discolouration [Recovered/Resolved]
  - Application site pain [Unknown]
  - Ocular hyperaemia [Unknown]
  - Psoriasis [Unknown]
  - Eye pruritus [Unknown]
  - Application site pruritus [Recovered/Resolved]
  - Drug ineffective [Recovered/Resolved]

NARRATIVE: CASE EVENT DATE: 201310
